FAERS Safety Report 4531673-0 (Version None)
Quarter: 2004Q4

REPORT INFORMATION
  Report Type: 
  Country: None (occurrence: None)
  Receive Date: 20041216
  Receipt Date: 20041216
  Transmission Date: 20050328
  Serious: Yes (Hospitalization)
  Sender: FDA-Public Use
  Company Number: None

PATIENT
  Age: 54 Year
  Sex: Male
  Weight: 50 kg

DRUGS (1)
  1. DILANTIN [Suspect]

REACTIONS (2)
  - ANTICONVULSANT TOXICITY [None]
  - MEDICATION ERROR [None]
